FAERS Safety Report 25212991 (Version 5)
Quarter: 2025Q3

REPORT INFORMATION
  Report Type: Spontaneous
  Country: US (occurrence: US)
  Receive Date: 20250418
  Receipt Date: 20250729
  Transmission Date: 20251021
  Serious: Yes (Hospitalization)
  Sender: SANOFI AVENTIS
  Company Number: US-SA-2025SA110515

PATIENT
  Age: 67 Year
  Sex: Female
  Weight: 99.79 kg

DRUGS (5)
  1. DUPIXENT [Suspect]
     Active Substance: DUPILUMAB
     Indication: Chronic obstructive pulmonary disease
     Dosage: 300 MG, QOW
     Route: 058
  2. DUPIXENT [Suspect]
     Active Substance: DUPILUMAB
     Indication: Chronic respiratory failure
  3. DUPIXENT [Suspect]
     Active Substance: DUPILUMAB
     Indication: Hypercapnia
  4. DUPIXENT [Suspect]
     Active Substance: DUPILUMAB
     Indication: Respiratory failure
  5. ENTYVIO [Concomitant]
     Active Substance: VEDOLIZUMAB

REACTIONS (7)
  - Eczema [Unknown]
  - Ankle fracture [Unknown]
  - Lower limb fracture [Unknown]
  - Lung disorder [Unknown]
  - Gait inability [Unknown]
  - Foot fracture [Unknown]
  - Product use in unapproved indication [Unknown]
